FAERS Safety Report 9382509 (Version 2)
Quarter: 2013Q3

REPORT INFORMATION
  Report Type: Spontaneous
  Country: CA (occurrence: CA)
  Receive Date: 20130703
  Receipt Date: 20130924
  Transmission Date: 20140515
  Serious: Yes (Hospitalization)
  Sender: FDA-Public Use
  Company Number: CA-GLAXOSMITHKLINE-A1028515A

PATIENT
  Sex: Female

DRUGS (2)
  1. FLOLAN [Suspect]
     Indication: PULMONARY HYPERTENSION
     Dosage: 4.5MG PER DAY
     Route: 042
     Dates: start: 20050111
  2. FLOLAN DILUENT [Suspect]
     Indication: PULMONARY HYPERTENSION
     Route: 065
     Dates: start: 20050111

REACTIONS (3)
  - Clostridium difficile infection [Unknown]
  - Dehydration [Unknown]
  - General physical health deterioration [Unknown]
